FAERS Safety Report 23838718 (Version 3)
Quarter: 2024Q3

REPORT INFORMATION
  Report Type: Report from Study
  Country: US (occurrence: US)
  Receive Date: 20240509
  Receipt Date: 20240711
  Transmission Date: 20241016
  Serious: No
  Sender: ALEXION PHARMACEUTICALS
  Company Number: US-AstraZeneca-CH-00619415A

PATIENT
  Sex: Female

DRUGS (1)
  1. STRENSIQ [Suspect]
     Active Substance: ASFOTASE ALFA
     Indication: Product used for unknown indication
     Dosage: UNK
     Route: 065

REACTIONS (8)
  - General physical health deterioration [Unknown]
  - Mobility decreased [Unknown]
  - Pain [Recovering/Resolving]
  - Stress [Unknown]
  - Fear [Not Recovered/Not Resolved]
  - Frustration tolerance decreased [Unknown]
  - Insurance issue [Unknown]
  - Blood pressure abnormal [Unknown]
